FAERS Safety Report 7700053-9 (Version None)
Quarter: 2011Q3

REPORT INFORMATION
  Report Type: 
  Country: None (occurrence: None)
  Receive Date: 20110822
  Receipt Date: 20110809
  Transmission Date: 20111222
  Serious: Yes (Hospitalization)
  Sender: FDA-Public Use
  Company Number: JP-ELI_LILLY_AND_COMPANY-JP201108005053

PATIENT
  Age: 61 Year

DRUGS (4)
  1. LITHIUM CARBONATE [Concomitant]
     Dosage: UNK
  2. PURSENNID [Concomitant]
     Dosage: UNK
  3. AMOBAN [Concomitant]
     Dosage: UNK
  4. CYMBALTA [Suspect]
     Indication: DEPRESSION
     Dosage: 40 MG, QD
     Route: 048
     Dates: start: 20110324

REACTIONS (1)
  - STEVENS-JOHNSON SYNDROME [None]
